FAERS Safety Report 8135664-2 (Version None)
Quarter: 2012Q1

REPORT INFORMATION
  Report Type: 
  Country: None (occurrence: None)
  Receive Date: 20120214
  Receipt Date: 20120209
  Transmission Date: 20120608
  Serious: Yes (Other)
  Sender: FDA-Public Use
  Company Number: PHHO2011GR05273

PATIENT
  Sex: Male
  Weight: 72 kg

DRUGS (12)
  1. ALISKIREN [Suspect]
     Indication: CARDIAC FAILURE
     Dosage: UNK
     Route: 048
     Dates: start: 20110225
  2. FUROSEMIDE [Concomitant]
     Indication: CARDIAC FAILURE
  3. ATORVASTATIN [Concomitant]
  4. ENALAPRIL MALEATE [Suspect]
     Indication: CARDIAC FAILURE
     Dosage: UNK
     Dates: start: 20110313, end: 20110318
  5. CLOPIDOGREL [Concomitant]
  6. BLINDED ALISKIREN [Suspect]
     Indication: CARDIAC FAILURE
     Dosage: NO TREATMENT
  7. METOCLOPRAMIDE [Concomitant]
     Indication: CARDIAC FAILURE
  8. BLINDED NO TREATMENT RECEIVED [Suspect]
     Indication: CARDIAC FAILURE
     Dosage: NO TREATMENT
  9. METFORMIN HCL [Concomitant]
     Indication: DIABETES MELLITUS
  10. ENALAPRIL MALEATE [Suspect]
     Indication: CARDIAC FAILURE
     Dosage: NO TREATMENT
  11. AMIODARONE HCL [Concomitant]
     Indication: VENTRICULAR ARRHYTHMIA
  12. EPLERENONE [Concomitant]
     Indication: CARDIAC FAILURE

REACTIONS (1)
  - RENAL FAILURE [None]
